FAERS Safety Report 24128925 (Version 1)
Quarter: 2024Q3

REPORT INFORMATION
  Report Type: Spontaneous
  Country: US (occurrence: None)
  Receive Date: 20240722
  Receipt Date: 20240722
  Transmission Date: 20241016
  Serious: No
  Sender: Public
  Company Number: None

PATIENT
  Sex: 0

DRUGS (1)
  1. TECFIDERA [Suspect]
     Active Substance: DIMETHYL FUMARATE

REACTIONS (5)
  - Hemiplegia [None]
  - Hypoaesthesia [None]
  - Peroneal nerve palsy [None]
  - Blindness unilateral [None]
  - Walking aid user [None]

NARRATIVE: CASE EVENT DATE: 20240719
